FAERS Safety Report 15440505 (Version 2)
Quarter: 2018Q4

REPORT INFORMATION
  Report Type: Report from Study
  Country: CZ (occurrence: CZ)
  Receive Date: 20180928
  Receipt Date: 20181113
  Transmission Date: 20190204
  Serious: Yes (Other)
  Sender: FDA-Public Use
  Company Number: PHHY2018CZ017517

PATIENT

DRUGS (4)
  1. TRAMETINIB [Suspect]
     Active Substance: TRAMETINIB
     Indication: METASTATIC MALIGNANT MELANOMA
     Dosage: UNK
     Route: 048
     Dates: start: 20180102
  2. SUMETROLIM [Concomitant]
     Active Substance: SULFAMETHOXAZOLE\TRIMETHOPRIM
     Indication: PRODUCT USED FOR UNKNOWN INDICATION
     Dosage: 2 DF, (DAILY ONLY EVERY MO, TUE (EACH WEEK))
     Route: 065
  3. EUTHYROX [Concomitant]
     Active Substance: LEVOTHYROXINE SODIUM
     Indication: PRODUCT USED FOR UNKNOWN INDICATION
     Dosage: 25 UG, QD
     Route: 065
  4. DABRAFENIB [Suspect]
     Active Substance: DABRAFENIB
     Indication: METASTATIC MALIGNANT MELANOMA
     Dosage: UNK
     Route: 048
     Dates: start: 20180102

REACTIONS (12)
  - Solar dermatitis [Recovered/Resolved]
  - Decreased appetite [Unknown]
  - Fatigue [Unknown]
  - Tricuspid valve incompetence [Recovering/Resolving]
  - Anaemia [Unknown]
  - Dilatation atrial [Recovering/Resolving]
  - Hypothyroidism [Unknown]
  - Oral herpes [Unknown]
  - Eczema [Unknown]
  - Chills [Unknown]
  - Aspartate aminotransferase increased [Unknown]
  - Dental caries [Recovered/Resolved]

NARRATIVE: CASE EVENT DATE: 20180130
